FAERS Safety Report 5635949-5 (Version None)
Quarter: 2008Q1

REPORT INFORMATION
  Report Type: 
  Country: None (occurrence: None)
  Receive Date: 20080224
  Receipt Date: 20080214
  Transmission Date: 20080703
  Serious: Yes (Other)
  Sender: FDA-Public Use
  Company Number: PHBS2008BR02225

PATIENT
  Sex: Male

DRUGS (2)
  1. RITALIN LA [Suspect]
     Dosage: 10 MG, UNK
     Route: 048
  2. RITALIN LA [Suspect]
     Dosage: 40 MG, QD
     Route: 048

REACTIONS (1)
  - TYPE 1 DIABETES MELLITUS [None]
